FAERS Safety Report 13709699 (Version 3)
Quarter: 2017Q3

REPORT INFORMATION
  Report Type: Spontaneous
  Country: US (occurrence: US)
  Receive Date: 20170703
  Receipt Date: 20170810
  Transmission Date: 20171127
  Serious: Yes (Death, Hospitalization)
  Sender: FDA-Public Use
  Company Number: US-CLOVIS ONCOLOGY-CLO-2017-000628

PATIENT
  Age: 64 Year
  Sex: Female

DRUGS (2)
  1. RUBRACA [Suspect]
     Active Substance: RUCAPARIB CAMSYLATE
     Indication: UTERINE CANCER
     Dosage: 600 MG, BID
     Route: 048
     Dates: start: 20170615, end: 20170725
  2. RUBRACA [Suspect]
     Active Substance: RUCAPARIB CAMSYLATE
     Indication: ENDOMETRIAL CANCER
     Dosage: UNK
     Dates: start: 20170701, end: 2017

REACTIONS (4)
  - Neoplasm malignant [Fatal]
  - Small intestinal obstruction [Unknown]
  - Off label use [Unknown]
  - Gastritis [Not Recovered/Not Resolved]

NARRATIVE: CASE EVENT DATE: 20170615
